FAERS Safety Report 9161448 (Version 1)
Quarter: 2013Q1

REPORT INFORMATION
  Report Type: Spontaneous
  Country: US (occurrence: US)
  Receive Date: 20130313
  Receipt Date: 20130313
  Transmission Date: 20140127
  Serious: No
  Sender: FDA-Public Use
  Company Number: US-ASTRAZENECA-2013SE10324

PATIENT
  Age: 49 Year
  Sex: Female
  Weight: 82.1 kg

DRUGS (10)
  1. ARIMIDEX [Suspect]
     Indication: BREAST CANCER
     Dosage: GENERIC
     Route: 048
     Dates: start: 201210, end: 20121217
  2. ARIMIDEX [Suspect]
     Indication: BREAST CANCER
     Route: 048
  3. LETROZOLE [Suspect]
     Route: 065
  4. LEXAPRO [Concomitant]
     Indication: ANXIETY
  5. LORTAB [Concomitant]
     Indication: PAIN
  6. VITAMIN D [Concomitant]
     Indication: VITAMIN SUPPLEMENTATION
  7. CALCIUM [Concomitant]
     Indication: MINERAL SUPPLEMENTATION
  8. COQ10 [Concomitant]
     Indication: ENZYME SUPPLEMENTATION
  9. B12 INJECTION [Concomitant]
     Indication: ANAEMIA
  10. IRON [Concomitant]
     Indication: MINERAL SUPPLEMENTATION

REACTIONS (12)
  - Pernicious anaemia [Unknown]
  - Intervertebral disc degeneration [Unknown]
  - Paraesthesia [Not Recovered/Not Resolved]
  - Burning sensation [Not Recovered/Not Resolved]
  - Muscular weakness [Not Recovered/Not Resolved]
  - Musculoskeletal disorder [Unknown]
  - Fatigue [Not Recovered/Not Resolved]
  - Myalgia [Not Recovered/Not Resolved]
  - Bone pain [Not Recovered/Not Resolved]
  - Arthralgia [Not Recovered/Not Resolved]
  - Trigger finger [Not Recovered/Not Resolved]
  - Drug dose omission [Unknown]
